FAERS Safety Report 4947238-2 (Version None)
Quarter: 2006Q1

REPORT INFORMATION
  Report Type: 
  Country: None (occurrence: None)
  Receive Date: 20060313
  Receipt Date: 20060308
  Transmission Date: 20060701
  Serious: Yes (Other)
  Sender: FDA-Public Use
  Company Number: 006829

PATIENT
  Sex: Female

DRUGS (6)
  1. MEDROXYPROGESTERONE ACETATE [Suspect]
     Dosage: ORAL
     Route: 048
  2. CENESTIN [Suspect]
     Dosage: ORAL
  3. PREMARIN [Suspect]
     Dosage: ORAL
     Route: 048
  4. PROVERA [Suspect]
     Dosage: ORAL
  5. PREMPRO [Suspect]
     Dosage: ORAL
  6. ESTROGENS SOL/INJ [Suspect]
     Dosage: ORAL

REACTIONS (1)
  - BREAST CANCER FEMALE [None]
